FAERS Safety Report 6219504-4 (Version None)
Quarter: 2009Q2

REPORT INFORMATION
  Report Type: 
  Country: None (occurrence: None)
  Receive Date: 20090605
  Receipt Date: 20090423
  Transmission Date: 20091009
  Serious: Yes (Life-Threatening, Hospitalization)
  Sender: FDA-Public Use
  Company Number: DSU-2009-00833

PATIENT
  Age: 70 Year
  Sex: Female
  Weight: 61.2356 kg

DRUGS (2)
  1. BENICAR HCT [Suspect]
     Indication: HYPERTENSION
     Dosage: 10/12.5 MG (QD) ,PER ORAL
     Route: 048
     Dates: start: 20090325, end: 20090325
  2. CRESTOR [Concomitant]

REACTIONS (2)
  - ANAPHYLACTIC SHOCK [None]
  - NON-CARDIOGENIC PULMONARY OEDEMA [None]
